FAERS Safety Report 6308225-5 (Version None)
Quarter: 2009Q3

REPORT INFORMATION
  Report Type: 
  Country: None (occurrence: None)
  Receive Date: 20090813
  Receipt Date: 20090727
  Transmission Date: 20100115
  Serious: Yes (Other)
  Sender: FDA-Public Use
  Company Number: US-BAYER-200926860NA

PATIENT
  Age: 41 Year
  Sex: Female

DRUGS (3)
  1. BETASERON [Suspect]
     Indication: MULTIPLE SCLEROSIS
     Dosage: TOTAL DAILY DOSE: 8 MIU
     Route: 058
     Dates: start: 20090311
  2. TYLENOL (CAPLET) [Suspect]
     Indication: PREMEDICATION
  3. ALEVE [Concomitant]
     Indication: PREMEDICATION

REACTIONS (1)
  - SOMNOLENCE [None]
